FAERS Safety Report 6435578-X (Version None)
Quarter: 2009Q4

REPORT INFORMATION
  Report Type: 
  Country: None (occurrence: None)
  Receive Date: 20091110
  Receipt Date: 20070926
  Transmission Date: 20100525
  Serious: Yes (Other)
  Sender: FDA-Public Use
  Company Number: AECAN200700220

PATIENT
  Age: 64 Year
  Sex: Male
  Weight: 8.6 kg

DRUGS (4)
  1. GAMUNEX [Suspect]
     Indication: KAWASAKI'S DISEASE
     Dosage: 17.5 GM; TOTAL; IV
     Route: 042
     Dates: start: 20070515, end: 20070518
  2. GAMUNEX [Suspect]
  3. GAMUNEX [Suspect]
  4. TYLENOL (CAPLET) [Concomitant]

REACTIONS (8)
  - BLOOD BILIRUBIN INCREASED [None]
  - BLOOD LACTATE DEHYDROGENASE INCREASED [None]
  - COOMBS DIRECT TEST POSITIVE [None]
  - HAEMOGLOBIN DECREASED [None]
  - HAEMOLYSIS [None]
  - HAPTOGLOBIN DECREASED [None]
  - RED BLOOD CELL COUNT DECREASED [None]
  - RETICULOCYTE COUNT DECREASED [None]
